FAERS Safety Report 10022897 (Version 3)
Quarter: 2014Q2

REPORT INFORMATION
  Report Type: Report from Study
  Country: ES (occurrence: ES)
  Receive Date: 20140319
  Receipt Date: 20140415
  Transmission Date: 20141212
  Serious: Yes (Hospitalization)
  Sender: FDA-Public Use
  Company Number: ES-PFIZER INC-2014075906

PATIENT
  Age: 78 Year
  Sex: Male
  Weight: 76.5 kg

DRUGS (3)
  1. TEMSIROLIMUS [Suspect]
     Indication: RENAL CELL CARCINOMA
     Dosage: 25 MG, WEEKLY
     Dates: start: 20130207, end: 20130214
  2. DEXAMETASON [Concomitant]
     Dosage: UNK
     Route: 048
  3. EMPORTAL [Concomitant]
     Dosage: UNK
     Route: 048

REACTIONS (1)
  - Pneumonia fungal [Not Recovered/Not Resolved]
